FAERS Safety Report 20475192 (Version 5)
Quarter: 2023Q2

REPORT INFORMATION
  Report Type: Report from Study
  Country: US (occurrence: US)
  Receive Date: 20220215
  Receipt Date: 20230620
  Transmission Date: 20230722
  Serious: Yes (Life-Threatening, Hospitalization)
  Sender: FDA-Public Use
  Company Number: US-ELI_LILLY_AND_COMPANY-US202202005080

PATIENT
  Age: 49 Year
  Sex: Male

DRUGS (15)
  1. GEMCITABINE HYDROCHLORIDE [Suspect]
     Active Substance: GEMCITABINE HYDROCHLORIDE
     Indication: Adenocarcinoma pancreas
     Dosage: 1000 MG/M2, DAYS 1, 8, AND 15 OF EACH 28-DAY CYCLE
     Route: 042
     Dates: start: 20211103, end: 20211115
  2. PACLITAXEL [Concomitant]
     Active Substance: PACLITAXEL
     Indication: Adenocarcinoma pancreas
     Dosage: 125 MG/M2, DAYS 1, 8, AND 15 OF EACH 28-DAY CYCLE
     Route: 042
     Dates: start: 20211103, end: 20211115
  3. BATIRAXCEPT [Concomitant]
     Active Substance: BATIRAXCEPT
     Indication: Adenocarcinoma pancreas
     Dosage: 15 MG/KG, DAY 1 AND 15 OF EACH 28-DAY CYCLE
     Route: 042
     Dates: start: 20211103, end: 20211115
  4. ALBUTEROL [Concomitant]
     Active Substance: ALBUTEROL
     Indication: Wheezing
     Dosage: 90 UG, PRN
     Route: 055
     Dates: start: 20210902
  5. AMLODIPINE [Concomitant]
     Active Substance: AMLODIPINE BESYLATE
     Indication: Blood pressure measurement
     Dosage: 5 MG, DAILY
     Route: 048
     Dates: start: 20210513
  6. METOPROLOL [Concomitant]
     Active Substance: METOPROLOL
     Indication: Blood pressure abnormal
     Dosage: 25 MG, DAILY
     Route: 048
     Dates: start: 20211002
  7. OMEPRAZOLE [Concomitant]
     Active Substance: OMEPRAZOLE
     Indication: Gastrooesophageal reflux disease
     Dosage: 40 MG, BID
     Route: 048
     Dates: start: 20211014
  8. ONDANSETRON [Concomitant]
     Active Substance: ONDANSETRON
     Indication: Nausea
     Dosage: 8 MG, PRN
     Route: 048
     Dates: start: 20211012
  9. OXYCODONE [Concomitant]
     Active Substance: OXYCODONE
     Indication: Pain
     Dosage: 10 MG, PRN
     Route: 048
     Dates: start: 20211002
  10. TYLENOL [Concomitant]
     Active Substance: ACETAMINOPHEN
     Indication: Pyrexia
     Dosage: UNK, UNKNOWN
     Route: 065
     Dates: start: 20211105
  11. LACTATED RINGERS SOLUTION [Concomitant]
     Active Substance: CALCIUM CHLORIDE\POTASSIUM CHLORIDE\SODIUM CHLORIDE\SODIUM LACTATE
     Indication: Fluid replacement
     Dosage: 1000 ML, INTERMITTENTLY
     Route: 042
     Dates: start: 20211106
  12. NOREPINEPHRINE [Concomitant]
     Active Substance: NOREPINEPHRINE
     Indication: Product used for unknown indication
     Dosage: UNK, INTERMITTENTLY
     Route: 042
     Dates: start: 20211106, end: 20211110
  13. VASOPRESSIN [Concomitant]
     Active Substance: VASOPRESSIN
     Indication: Product used for unknown indication
     Dosage: 50 INTERNATIONAL UNIT, INTERMITTENTLY
     Route: 042
     Dates: start: 20211106, end: 20211110
  14. ANGIOTENSIN II [Concomitant]
     Active Substance: ANGIOTENSIN II
     Indication: Product used for unknown indication
     Dosage: 2.5 MG, INTERMITTENTLY
     Route: 042
     Dates: start: 20211106, end: 20211110
  15. ALBUMIN HUMAN [Concomitant]
     Active Substance: ALBUMIN HUMAN
     Indication: Product used for unknown indication

REACTIONS (1)
  - Sepsis [Recovered/Resolved]

NARRATIVE: CASE EVENT DATE: 20211106
